FAERS Safety Report 22114745 (Version 7)
Quarter: 2023Q2

REPORT INFORMATION
  Report Type: Report from Study
  Country: GR (occurrence: GR)
  Receive Date: 20230320
  Receipt Date: 20230523
  Transmission Date: 20230721
  Serious: Yes (Death, Life-Threatening, Hospitalization)
  Sender: FDA-Public Use
  Company Number: GR-ROCHE-3288397

PATIENT
  Age: 47 Year
  Sex: Male
  Weight: 64 kg

DRUGS (5)
  1. LENALIDOMIDE [Suspect]
     Active Substance: LENALIDOMIDE
     Indication: Follicular lymphoma
     Dosage: 20MG,QD,(1-21 DURING CYCLES 1-12, EVERY 1 DAYS)
     Route: 048
     Dates: start: 20230111, end: 20230126
  2. RITUXIMAB [Suspect]
     Active Substance: RITUXIMAB
     Indication: Follicular lymphoma
     Dosage: 375 MG/SQ. METER, QW, WEEKLY CYCLE 1
     Route: 042
     Dates: start: 20230111, end: 20230118
  3. RITUXIMAB [Suspect]
     Active Substance: RITUXIMAB
     Dosage: 375 MG/SQ. METER, QW, WEEKLY CYCLE 1
     Route: 042
     Dates: start: 20230125, end: 20230217
  4. RITUXIMAB [Suspect]
     Active Substance: RITUXIMAB
     Dosage: UNK
     Route: 065
  5. EPCORITAMAB [Suspect]
     Active Substance: EPCORITAMAB
     Indication: Follicular lymphoma
     Dosage: UNK
     Route: 065

REACTIONS (16)
  - Septic shock [Fatal]
  - Endotracheal intubation [Fatal]
  - Aspergillus test positive [Fatal]
  - Acinetobacter test positive [Fatal]
  - Fungal sepsis [Fatal]
  - Acinetobacter sepsis [Fatal]
  - Thrombocytopenia [Not Recovered/Not Resolved]
  - Neutropenia [Recovered/Resolved]
  - Enterococcus test positive [Recovered/Resolved with Sequelae]
  - Bacteraemia [Not Recovered/Not Resolved]
  - Bronchopulmonary aspergillosis [Recovered/Resolved with Sequelae]
  - Sepsis [Unknown]
  - Pneumonia [Recovered/Resolved with Sequelae]
  - Anaemia [Not Recovered/Not Resolved]
  - Pyrexia [Recovered/Resolved]
  - Hypoxia [Not Recovered/Not Resolved]

NARRATIVE: CASE EVENT DATE: 20230116
